FAERS Safety Report 4698937-1 (Version None)
Quarter: 2005Q2

REPORT INFORMATION
  Report Type: 
  Country: None (occurrence: None)
  Receive Date: 20050624
  Receipt Date: 20050617
  Transmission Date: 20051028
  Serious: Yes (Hospitalization)
  Sender: FDA-Public Use
  Company Number: GB-BRISTOL-MYERS SQUIBB COMPANY-13009568

PATIENT
  Age: 66 Year
  Sex: Male

DRUGS (2)
  1. ETOPOPHOS [Suspect]
     Indication: TESTICULAR NEOPLASM
     Route: 042
  2. PLATINEX [Concomitant]
     Indication: TESTICULAR NEOPLASM
     Route: 042

REACTIONS (2)
  - ATRIAL FIBRILLATION [None]
  - HEART RATE INCREASED [None]
